FAERS Safety Report 4943578-1 (Version None)
Quarter: 2006Q1

REPORT INFORMATION
  Report Type: 
  Country: None (occurrence: None)
  Receive Date: 20060310
  Receipt Date: 20060227
  Transmission Date: 20060701
  Serious: Yes (Other)
  Sender: FDA-Public Use
  Company Number: B0403122A

PATIENT
  Age: 32 Year
  Sex: Female
  Weight: 54.3863 kg

DRUGS (2)
  1. ADVAIR DISKUS 100/50 [Suspect]
     Indication: ASTHMA
     Dosage: 2 PUFF (S) / TWICE PER DAY/ INHALED
     Route: 055
     Dates: start: 20041201
  2. VENTOLIN [Suspect]
     Dosage: 2 PUFF(S) AS REQUIRED / INHALED
     Route: 055

REACTIONS (4)
  - ASTHMA [None]
  - CONDITION AGGRAVATED [None]
  - DRUG EXPOSURE DURING PREGNANCY [None]
  - PREGNANCY [None]
